FAERS Safety Report 17706847 (Version 1)
Quarter: 2020Q2

REPORT INFORMATION
  Report Type: Spontaneous
  Country: JP (occurrence: JP)
  Receive Date: 20200424
  Receipt Date: 20200424
  Transmission Date: 20200714
  Serious: Yes (Death, Life-Threatening, Hospitalization, Other)
  Sender: FDA-Public Use
  Company Number: JP-ELI_LILLY_AND_COMPANY-JP202004008169

PATIENT
  Age: 78 Year
  Sex: Female
  Weight: 37 kg

DRUGS (8)
  1. OPSUMIT [Concomitant]
     Active Substance: MACITENTAN
     Indication: PULMONARY ARTERIAL HYPERTENSION
     Dosage: 10 MG, UNKNOWN
  2. CIALIS [Suspect]
     Active Substance: TADALAFIL
     Dosage: 20 MG, DAILY
     Route: 065
     Dates: start: 20180628
  3. CIALIS [Suspect]
     Active Substance: TADALAFIL
     Indication: PULMONARY ARTERIAL HYPERTENSION
     Dosage: 40 MG, DAILY
     Route: 065
  4. UPTRAVI [Suspect]
     Active Substance: SELEXIPAG
     Dosage: 2 MG, DAILY
     Route: 048
     Dates: start: 20180831, end: 20181207
  5. UPTRAVI [Suspect]
     Active Substance: SELEXIPAG
     Dosage: 2.4 MG, DAILY
     Route: 048
     Dates: start: 20180330, end: 20180831
  6. UPTRAVI [Suspect]
     Active Substance: SELEXIPAG
     Indication: PULMONARY ARTERIAL HYPERTENSION
     Dosage: 0.4 MG, DAILY
     Route: 048
     Dates: start: 20170224, end: 20170309
  7. UPTRAVI [Suspect]
     Active Substance: SELEXIPAG
     Dosage: 1.6 MG, QOD
     Route: 048
     Dates: start: 20181207
  8. UPTRAVI [Suspect]
     Active Substance: SELEXIPAG
     Dosage: 2 MG, DAILY
     Route: 048
     Dates: start: 20180309, end: 20180330

REACTIONS (29)
  - Systemic scleroderma [Unknown]
  - Primary biliary cholangitis [Unknown]
  - Aortic aneurysm [Not Recovered/Not Resolved]
  - Pneumonia [Recovered/Resolved]
  - Insomnia [Unknown]
  - Headache [Recovered/Resolved]
  - Headache [Unknown]
  - Haemoptysis [Recovered/Resolved]
  - Pyrexia [Unknown]
  - Pleural effusion [Unknown]
  - Ascites [Unknown]
  - Productive cough [Unknown]
  - Urinary tract infection [Recovered/Resolved]
  - Hypotension [Recovered/Resolved]
  - Hypokalaemia [Unknown]
  - Diarrhoea [Unknown]
  - Disease progression [Fatal]
  - Platelet count decreased [Recovered/Resolved]
  - Nephrogenic anaemia [Unknown]
  - Depression [Unknown]
  - Oxygen saturation abnormal [Recovering/Resolving]
  - Pneumonia aspiration [Unknown]
  - Melaena [Unknown]
  - Cardiac failure [Recovering/Resolving]
  - Subdural haematoma [Recovered/Resolved]
  - Brain herniation [Recovered/Resolved]
  - Hypokalaemia [Recovered/Resolved]
  - Pancytopenia [Unknown]
  - Hypotension [Recovered/Resolved]

NARRATIVE: CASE EVENT DATE: 20170421
